FAERS Safety Report 14478300 (Version 2)
Quarter: 2018Q1

REPORT INFORMATION
  Report Type: Spontaneous
  Country: JP (occurrence: JP)
  Receive Date: 20180202
  Receipt Date: 20180301
  Transmission Date: 20180509
  Serious: No
  Sender: FDA-Public Use
  Company Number: JP-ROCHE-2062492

PATIENT
  Age: 73 Year
  Sex: Male

DRUGS (3)
  1. NIFEDIPINE CR [Concomitant]
     Active Substance: NIFEDIPINE
     Dosage: DOSAGE IS UNCERTAIN.
     Route: 065
     Dates: start: 20180114
  2. TAMIFLU [Suspect]
     Active Substance: OSELTAMIVIR PHOSPHATE
     Indication: INFLUENZA
     Dosage: DOSAGE IS UNCERTAIN.
     Route: 048
     Dates: start: 20180116, end: 20180117
  3. TULOBUTEROL [Concomitant]
     Active Substance: TULOBUTEROL
     Dosage: DOSAGE IS UNCERTAIN.
     Route: 062
     Dates: start: 20180116

REACTIONS (1)
  - Hallucination [Recovered/Resolved]

NARRATIVE: CASE EVENT DATE: 20180117
